FAERS Safety Report 10611818 (Version 3)
Quarter: 2015Q1

REPORT INFORMATION
  Report Type: Spontaneous
  Country: FR (occurrence: FR)
  Receive Date: 20141126
  Receipt Date: 20150309
  Transmission Date: 20150720
  Serious: Yes (Hospitalization)
  Sender: FDA-Public Use
  Company Number: FR-B.I. PHARMACEUTICALS,INC./RIDGEFIELD-2014-BI-56342FF

PATIENT
  Age: 68 Year
  Sex: Female

DRUGS (16)
  1. EPINITRIL [Suspect]
     Active Substance: NITROGLYCERIN
     Indication: PROPHYLAXIS
     Dosage: 5 MG
     Route: 062
     Dates: start: 20141015, end: 20141020
  2. EUPANTOL [Suspect]
     Active Substance: PANTOPRAZOLE SODIUM
     Indication: PROPHYLAXIS
     Dosage: 40 MG
     Route: 042
     Dates: start: 20141013, end: 20141016
  3. MORPHINE HYDROCHLORIDE [Suspect]
     Active Substance: MORPHINE HYDROCHLORIDE
     Indication: PAIN
     Route: 042
     Dates: start: 20141013, end: 20141016
  4. VENTOLINE [Suspect]
     Active Substance: ALBUTEROL
     Indication: DYSPNOEA
     Dosage: 15 MG
     Route: 055
     Dates: start: 20141020, end: 20141020
  5. ASPEGIC [Suspect]
     Active Substance: ASPIRIN DL-LYSINE
     Indication: MYOCARDIAL ISCHAEMIA
     Dosage: 125 MG
     Route: 042
     Dates: start: 20141014, end: 20141017
  6. TRIFLUCAN [Suspect]
     Active Substance: FLUCONAZOLE
     Indication: INFLAMMATION
     Dosage: 50 MG
     Route: 048
     Dates: start: 20141025, end: 20141029
  7. ROCEPHINE [Suspect]
     Active Substance: CEFTRIAXONE SODIUM
     Dosage: 1 G
     Route: 058
     Dates: start: 20141024
  8. RISORDAN [Suspect]
     Active Substance: ISOSORBIDE DINITRATE
     Dosage: 24 MG
     Route: 042
     Dates: end: 20141027
  9. CONTRAMAL [Suspect]
     Active Substance: TRAMADOL HYDROCHLORIDE
     Indication: PAIN
     Dosage: 30 MG
     Route: 048
     Dates: start: 20141025, end: 20141026
  10. NORMACOL [Suspect]
     Active Substance: KARAYA GUM
     Indication: CONSTIPATION
     Route: 054
     Dates: start: 20141014, end: 20141018
  11. CALCIPARINE [Suspect]
     Active Substance: HEPARIN CALCIUM
     Indication: THROMBOSIS PROPHYLAXIS
     Dosage: 5000 U
     Route: 058
     Dates: start: 20141013, end: 20141018
  12. NORMACOL [Suspect]
     Active Substance: KARAYA GUM
     Route: 054
     Dates: start: 20141018
  13. ATROVENT [Suspect]
     Active Substance: IPRATROPIUM BROMIDE
     Indication: DYSPNOEA
     Dosage: 1.5 MG
     Route: 055
     Dates: start: 20141020, end: 20141020
  14. ROCEPHINE [Suspect]
     Active Substance: CEFTRIAXONE SODIUM
     Indication: URINARY TRACT INFECTION
     Dosage: 1 G
     Route: 058
     Dates: start: 20141013, end: 20141020
  15. RISORDAN [Suspect]
     Active Substance: ISOSORBIDE DINITRATE
     Indication: ANGINA UNSTABLE
     Dosage: 30 MG
     Route: 042
  16. HYPNOVEL [Suspect]
     Active Substance: MIDAZOLAM\MIDAZOLAM HYDROCHLORIDE
     Indication: AGITATION
     Route: 058
     Dates: start: 20141014, end: 20141023

REACTIONS (1)
  - Neutropenia [Recovered/Resolved]

NARRATIVE: CASE EVENT DATE: 20141027
